FAERS Safety Report 11357626 (Version 1)
Quarter: 2015Q3

REPORT INFORMATION
  Report Type: Spontaneous
  Country: US (occurrence: US)
  Receive Date: 20150803
  Receipt Date: 20150803
  Transmission Date: 20151125
  Serious: No
  Sender: FDA-Public Use
  Company Number: US-ELI_LILLY_AND_COMPANY-US201204006873

PATIENT
  Age: 44 Year
  Sex: Male

DRUGS (3)
  1. ZYPREXA [Suspect]
     Active Substance: OLANZAPINE
     Dosage: 20 MG, QD
  2. ZYPREXA [Suspect]
     Active Substance: OLANZAPINE
     Indication: SCHIZOPHRENIA
     Dosage: 10 MG, QD
  3. ZYPREXA [Suspect]
     Active Substance: OLANZAPINE
     Dosage: 15 MG, QD

REACTIONS (8)
  - Somnolence [Unknown]
  - Insomnia [Not Recovered/Not Resolved]
  - Decreased interest [Unknown]
  - Hypersomnia [Unknown]
  - Headache [Unknown]
  - Visual impairment [Unknown]
  - Weight increased [Unknown]
  - Asthenia [Unknown]
